FAERS Safety Report 7557681-3 (Version None)
Quarter: 2011Q2

REPORT INFORMATION
  Report Type: 
  Country: None (occurrence: None)
  Receive Date: 20110620
  Receipt Date: 20110610
  Transmission Date: 20111010
  Serious: Yes (Other)
  Sender: FDA-Public Use
  Company Number: FR-ASTRAZENECA-2011SE20923

PATIENT
  Age: 68 Year
  Sex: Male
  Weight: 78 kg

DRUGS (5)
  1. VANDETANIB [Suspect]
     Route: 048
     Dates: start: 20110524, end: 20110608
  2. VANDETANIB [Suspect]
     Route: 048
     Dates: start: 20110609
  3. VANDETANIB [Suspect]
     Indication: THYROID CANCER
     Route: 048
     Dates: start: 20110228, end: 20110407
  4. APROVEL [Concomitant]
     Indication: HYPERTENSION
  5. PHYSIOTENS [Concomitant]
     Indication: HYPERTENSION

REACTIONS (4)
  - ERYTHROSIS [None]
  - ATRIAL FIBRILLATION [None]
  - HYPERTENSION [None]
  - RENAL FAILURE [None]
